FAERS Safety Report 7703192-1 (Version None)
Quarter: 2011Q3

REPORT INFORMATION
  Report Type: 
  Country: None (occurrence: None)
  Receive Date: 20110823
  Receipt Date: 20110817
  Transmission Date: 20111222
  Serious: Yes (Hospitalization, Other)
  Sender: FDA-Public Use
  Company Number: DK-PFIZER INC-2011190009

PATIENT
  Age: 39 Year
  Sex: Female
  Weight: 74 kg

DRUGS (1)
  1. CYTOTEC [Suspect]
     Indication: ABORTION INDUCED
     Dosage: 0.4 MG, SINGLE
     Route: 067
     Dates: start: 20110812, end: 20110812

REACTIONS (3)
  - OFF LABEL USE [None]
  - ANGIOEDEMA [None]
  - CONJUNCTIVITIS ALLERGIC [None]
